FAERS Safety Report 8241788-1 (Version None)
Quarter: 2012Q1

REPORT INFORMATION
  Report Type: 
  Country: None (occurrence: None)
  Receive Date: 20120328
  Receipt Date: 20120315
  Transmission Date: 20120608
  Serious: Yes (Death, Hospitalization)
  Sender: FDA-Public Use
  Company Number: GB-RB-038491-12

PATIENT
  Age: 43 Year
  Sex: Male

DRUGS (1)
  1. SUBUTEX [Suspect]
     Indication: PRODUCT USED FOR UNKNOWN INDICATION
     Dosage: UNKNOWN DOSAGE; 1 PILL INHALED
     Route: 045
     Dates: end: 20110115

REACTIONS (3)
  - INTENTIONAL DRUG MISUSE [None]
  - PNEUMONIA [None]
  - PULMONARY OEDEMA [None]
